FAERS Safety Report 19949677 (Version 1)
Quarter: 2021Q4

REPORT INFORMATION
  Report Type: Spontaneous
  Country: US (occurrence: US)
  Receive Date: 20211012
  Receipt Date: 20211012
  Transmission Date: 20220303
  Serious: Yes (Disabling)
  Sender: FDA-Public Use
  Company Number: None

PATIENT
  Age: 59 Year
  Sex: Male
  Weight: 85.5 kg

DRUGS (1)
  1. VIIBRYD [Suspect]
     Active Substance: VILAZODONE HYDROCHLORIDE
     Indication: Depression
     Dosage: ?          QUANTITY:1 TABLET(S);
     Route: 048
     Dates: start: 20200823, end: 20210501

REACTIONS (6)
  - Serotonin syndrome [None]
  - Hallucination [None]
  - Crying [None]
  - Mental status changes [None]
  - Post-traumatic stress disorder [None]
  - Libido increased [None]

NARRATIVE: CASE EVENT DATE: 20210430
